FAERS Safety Report 18763153 (Version 3)
Quarter: 2021Q3

REPORT INFORMATION
  Report Type: Spontaneous
  Country: US (occurrence: US)
  Receive Date: 20210120
  Receipt Date: 20210701
  Transmission Date: 20211014
  Serious: No
  Sender: FDA-Public Use
  Company Number: US-PFIZER INC-2021026739

PATIENT
  Age: 52 Year
  Sex: Male

DRUGS (2)
  1. LYRICA [Suspect]
     Active Substance: PREGABALIN
     Dosage: UNK
  2. LYRICA [Suspect]
     Active Substance: PREGABALIN
     Dosage: 150 MG, 3X/DAY  (1 CAPSULE IN THE AM, 1 AT NOON AND 2 CAPSULES AT NIGHT)

REACTIONS (4)
  - Thinking abnormal [Unknown]
  - Feeling abnormal [Unknown]
  - Confusional state [Unknown]
  - Illness [Unknown]
